FAERS Safety Report 5764513-2 (Version None)
Quarter: 2008Q2

REPORT INFORMATION
  Report Type: 
  Country: None (occurrence: None)
  Receive Date: 20080605
  Receipt Date: 20080528
  Transmission Date: 20081010
  Serious: Yes (Other)
  Sender: FDA-Public Use
  Company Number: 2008013870

PATIENT
  Age: 68 Year
  Sex: Female
  Weight: 59 kg

DRUGS (1)
  1. BENADRYL [Suspect]
     Indication: ARTHROPOD BITE
     Dosage: 1 CAPSULE AFTERNOON AND NIGHT TIME (2 IN 1 D), ORAL
     Route: 048
     Dates: start: 20080429, end: 20080430

REACTIONS (1)
  - LOSS OF CONSCIOUSNESS [None]
